FAERS Safety Report 11177794 (Version 1)
Quarter: 2015Q2

REPORT INFORMATION
  Report Type: Spontaneous
  Country: US (occurrence: None)
  Receive Date: 20150515
  Receipt Date: 20150515
  Transmission Date: 20150821
  Serious: Yes (Other)
  Sender: FDA-Public Use
  Company Number: 116317

PATIENT
  Age: 16 Year
  Sex: Female
  Weight: 65 kg

DRUGS (9)
  1. PENTASA [Concomitant]
     Active Substance: MESALAMINE
  2. PROAIR HFA [Suspect]
     Active Substance: ALBUTEROL SULFATE
  3. CIMZIA [Suspect]
     Active Substance: CERTOLIZUMAB PEGOL
     Indication: RHEUMATOID ARTHRITIS
     Dates: start: 20140322, end: 20140322
  4. VERAMYST (FLUTICASONE) [Concomitant]
  5. ADVAIR (FLUTICASONE PROPIONATE; SALMETEROL XINAFOATE) [Concomitant]
  6. PREVACID [Concomitant]
     Active Substance: LANSOPRAZOLE
  7. GABAPENTINE (GABAPENTIN) [Concomitant]
  8. CIMZIA [Suspect]
     Active Substance: CERTOLIZUMAB PEGOL
     Indication: CROHN^S DISEASE
     Dates: start: 20140322, end: 20140322
  9. IRON [Concomitant]
     Active Substance: IRON

REACTIONS (1)
  - Anaphylactic reaction [None]

NARRATIVE: CASE EVENT DATE: 20140322
